FAERS Safety Report 24573532 (Version 2)
Quarter: 2024Q4

REPORT INFORMATION
  Report Type: Spontaneous
  Country: US (occurrence: US)
  Receive Date: 20241102
  Receipt Date: 20241210
  Transmission Date: 20250115
  Serious: Yes (Hospitalization, Other)
  Sender: TORRENT PHARMA INC.
  Company Number: US-TORRENT-00013820

PATIENT
  Age: 15 Year
  Sex: Male

DRUGS (1)
  1. MINOCYCLINE [Suspect]
     Active Substance: MINOCYCLINE HYDROCHLORIDE
     Indication: Acne
     Dosage: UNKNOWN
     Route: 065

REACTIONS (4)
  - Drug reaction with eosinophilia and systemic symptoms [Unknown]
  - Tubulointerstitial nephritis [Unknown]
  - Drug-induced liver injury [Unknown]
  - Disease recurrence [Unknown]
